FAERS Safety Report 4931062-0 (Version None)
Quarter: 2006Q1

REPORT INFORMATION
  Report Type: 
  Country: None (occurrence: None)
  Receive Date: 20060227
  Receipt Date: 20060221
  Transmission Date: 20060701
  Serious: Yes (Death)
  Sender: FDA-Public Use
  Company Number: CHPA2006US02117

PATIENT
  Age: 57 Year
  Sex: Male
  Weight: 117.9 kg

DRUGS (1)
  1. COMTREX DAY + NIGHT COLD+COUGH (NCH)(PARACETAMOL, DEXTROMETHORPHAN, PH [Suspect]
     Indication: NASOPHARYNGITIS
     Dosage: ORAL
     Route: 048
     Dates: start: 20051201

REACTIONS (2)
  - MYOCARDIAL INFARCTION [None]
  - PULMONARY OEDEMA [None]
